FAERS Safety Report 6974362-5 (Version None)
Quarter: 2010Q3

REPORT INFORMATION
  Report Type: 
  Country: None (occurrence: None)
  Receive Date: 20100909
  Receipt Date: 20080407
  Transmission Date: 20110219
  Serious: No
  Sender: FDA-Public Use
  Company Number: US-WYE-H03515508

PATIENT
  Age: 55 Year
  Sex: Male
  Weight: 81.72 kg

DRUGS (5)
  1. PROTONIX [Suspect]
     Indication: GASTROOESOPHAGEAL REFLUX DISEASE
     Dosage: 40 MG QID (OVERDOSE AMOUNT)
     Route: 048
     Dates: start: 20060101, end: 20080101
  2. PERCOCET [Concomitant]
  3. VICODIN [Concomitant]
  4. BENICAR [Concomitant]
  5. ACTOS [Concomitant]

REACTIONS (3)
  - DRUG EFFECT DECREASED [None]
  - DRUG SCREEN POSITIVE [None]
  - INTENTIONAL OVERDOSE [None]
